FAERS Safety Report 16118018 (Version 3)
Quarter: 2019Q2

REPORT INFORMATION
  Report Type: Report from Study
  Country: DE (occurrence: DE)
  Receive Date: 20190326
  Receipt Date: 20190403
  Transmission Date: 20190711
  Serious: Yes (Hospitalization)
  Sender: FDA-Public Use
  Company Number: DE-EISAI MEDICAL RESEARCH-EC-2019-053857

PATIENT
  Age: 66 Year
  Sex: Female
  Weight: 84 kg

DRUGS (14)
  1. RIVAROXABAN [Concomitant]
     Active Substance: RIVAROXABAN
  2. LEVOTHYROXIN [Concomitant]
     Active Substance: LEVOTHYROXINE
  3. CEFUROXIME. [Concomitant]
     Active Substance: CEFUROXIME
  4. LENVATINIB [Suspect]
     Active Substance: LENVATINIB
     Indication: THYROID CANCER
     Dosage: 24MG OR 18 MG
     Route: 048
     Dates: start: 20181207, end: 20190322
  5. LERCANIDIPINE [Concomitant]
     Active Substance: LERCANIDIPINE
  6. METFORMIN [Concomitant]
     Active Substance: METFORMIN HYDROCHLORIDE
  7. GLIMEPIRID [Concomitant]
     Active Substance: GLIMEPIRIDE
  8. RAMILICH [Concomitant]
     Active Substance: RAMIPRIL
  9. RANITIDINE. [Concomitant]
     Active Substance: RANITIDINE
  10. OMEPRAZOLE. [Concomitant]
     Active Substance: OMEPRAZOLE
  11. SIMVASTATIN. [Concomitant]
     Active Substance: SIMVASTATIN
  12. METOCLOPRAMIDE. [Concomitant]
     Active Substance: METOCLOPRAMIDE
  13. METOPROLOL. [Concomitant]
     Active Substance: METOPROLOL
  14. HYDROCHLOROTHIAZIDE. [Concomitant]
     Active Substance: HYDROCHLOROTHIAZIDE

REACTIONS (1)
  - Abscess [Recovering/Resolving]

NARRATIVE: CASE EVENT DATE: 20190320
